FAERS Safety Report 8585677 (Version 1)
Quarter: 2012Q4

REPORT INFORMATION
  Report Type: 
  Country: US (occurrence: US)
  Receive Date: 20120912
  Receipt Date: 20120912
  Transmission Date: 20130627
  Serious: Yes (Hospitalization)
  Sender: FDA-Public Use
  Company Number: US-GLAXOSMITHKLINE-A0971518A

PATIENT
  Age: 33 Year
  Sex: Female

DRUGS (3)
  1. FLOLAN [Suspect]
     Indication: PULMONARY ARTERIAL HYPERTENSION
     Dosage: 23NGKM Continuous
     Route: 042
     Dates: start: 20100217
  2. REVATIO [Concomitant]
  3. WARFARIN [Concomitant]

REACTIONS (2)
  - Pneumonia [Unknown]
  - Furuncle [Recovered/Resolved]
